FAERS Safety Report 10869102 (Version 1)
Quarter: 2015Q1

REPORT INFORMATION
  Report Type: Spontaneous
  Country: JP (occurrence: JP)
  Receive Date: 20150225
  Receipt Date: 20150225
  Transmission Date: 20150721
  Serious: Yes (Other)
  Sender: FDA-Public Use
  Company Number: JP-ASTRAZENECA-2015SE06066

PATIENT
  Age: 73 Year
  Sex: Female
  Weight: 73 kg

DRUGS (10)
  1. AMLODIPINE [Concomitant]
     Active Substance: AMLODIPINE BESYLATE
     Indication: HYPERTENSION
     Route: 048
  2. LEBENIN [Concomitant]
     Active Substance: LACTOBACILLUS ACIDOPHILUS\STREPTOCOCCUS FAECAIS
     Indication: DIARRHOEA
     Route: 065
     Dates: start: 20130411
  3. NEXIUM [Suspect]
     Active Substance: ESOMEPRAZOLE MAGNESIUM
     Indication: GASTROOESOPHAGEAL REFLUX DISEASE
     Route: 048
     Dates: start: 20130116, end: 20150106
  4. LIPITOR [Concomitant]
     Active Substance: ATORVASTATIN CALCIUM
     Indication: DYSLIPIDAEMIA
     Route: 048
     Dates: start: 20110908
  5. OLMETEC [Concomitant]
     Active Substance: OLMESARTAN MEDOXOMIL
     Indication: HYPERTENSION
     Route: 048
  6. MEILAX [Concomitant]
     Active Substance: ETHYL LOFLAZEPATE
     Indication: INSOMNIA
     Route: 048
     Dates: start: 20121124
  7. ALLEGRA [Concomitant]
     Active Substance: FEXOFENADINE HYDROCHLORIDE
     Indication: RHINITIS ALLERGIC
     Route: 048
     Dates: start: 20140612
  8. NEXIUM [Suspect]
     Active Substance: ESOMEPRAZOLE MAGNESIUM
     Indication: GASTROOESOPHAGEAL REFLUX DISEASE
     Route: 048
     Dates: start: 20121027, end: 201212
  9. HALCION [Concomitant]
     Active Substance: TRIAZOLAM
     Indication: INSOMNIA
     Route: 048
  10. OHSUGI HANGEKOBOKUTO EXTRACT GRANULES G [Concomitant]
     Indication: ANXIETY DISORDER
     Route: 048
     Dates: start: 201407

REACTIONS (1)
  - Hypergastrinaemia [Recovered/Resolved]

NARRATIVE: CASE EVENT DATE: 20141217
